FAERS Safety Report 5741008-3 (Version None)
Quarter: 2008Q2

REPORT INFORMATION
  Report Type: 
  Country: None (occurrence: None)
  Receive Date: 20080516
  Receipt Date: 20080506
  Transmission Date: 20081010
  Serious: Yes (Hospitalization)
  Sender: FDA-Public Use
  Company Number: FR-PFIZER INC-2008039168

PATIENT
  Sex: Male

DRUGS (2)
  1. XANAX [Suspect]
     Route: 064
  2. PAROXETINE HCL [Suspect]
     Route: 064

REACTIONS (8)
  - ATRIAL SEPTAL DEFECT [None]
  - CYANOSIS [None]
  - DRUG EXPOSURE DURING PREGNANCY [None]
  - HYPERTONIA [None]
  - HYPOTONIA NEONATAL [None]
  - NYSTAGMUS [None]
  - POOR SUCKING REFLEX [None]
  - SKULL MALFORMATION [None]
